FAERS Safety Report 21295581 (Version 1)
Quarter: 2022Q3

REPORT INFORMATION
  Report Type: Spontaneous
  Country: BR (occurrence: BR)
  Receive Date: 20220906
  Receipt Date: 20220906
  Transmission Date: 20221027
  Serious: Yes (Other)
  Sender: FDA-Public Use
  Company Number: BR-PFIZER INC-2015402914

PATIENT
  Age: 42 Year
  Sex: Male

DRUGS (3)
  1. ENBREL [Suspect]
     Active Substance: ETANERCEPT
     Indication: Product used for unknown indication
     Dosage: 50 MG, WEEKLY
     Route: 065
     Dates: start: 2009
  2. ENBREL [Suspect]
     Active Substance: ETANERCEPT
     Dosage: 50 MG, WEEKLY
     Route: 065
  3. ENBREL [Suspect]
     Active Substance: ETANERCEPT
     Dosage: UNK
     Route: 065
     Dates: start: 2018

REACTIONS (8)
  - Condition aggravated [Unknown]
  - Autism spectrum disorder [Unknown]
  - Intellectual disability [Unknown]
  - Anxiety [Unknown]
  - Psoriasis [Unknown]
  - Injection site pruritus [Unknown]
  - Injection site discolouration [Unknown]
  - Injection site erythema [Unknown]

NARRATIVE: CASE EVENT DATE: 20110101
